FAERS Safety Report 22340821 (Version 2)
Quarter: 2023Q2

REPORT INFORMATION
  Report Type: Spontaneous
  Country: US (occurrence: US)
  Receive Date: 20230518
  Receipt Date: 20230619
  Transmission Date: 20230722
  Serious: No
  Sender: FDA-Public Use
  Company Number: US-BRISTOL-MYERS SQUIBB COMPANY-2023-066796

PATIENT
  Age: 75 Year
  Sex: Female

DRUGS (1)
  1. INREBIC [Suspect]
     Active Substance: FEDRATINIB HYDROCHLORIDE
     Indication: Myelofibrosis
     Route: 048
     Dates: start: 20230418

REACTIONS (5)
  - Constipation [Unknown]
  - Haemoglobin decreased [Unknown]
  - Pruritus [Unknown]
  - Cystitis [Unknown]
  - Pain [Unknown]
